APPROVED DRUG PRODUCT: BETAMETHASONE DIPROPIONATE
Active Ingredient: BETAMETHASONE DIPROPIONATE
Strength: EQ 0.05% BASE
Dosage Form/Route: LOTION;TOPICAL
Application: A074272 | Product #001
Applicant: SUN PHARMA CANADA INC
Approved: Sep 30, 1994 | RLD: No | RS: No | Type: DISCN